FAERS Safety Report 15550459 (Version 2)
Quarter: 2018Q4

REPORT INFORMATION
  Report Type: Other
  Country: NL (occurrence: NL)
  Receive Date: 20181025
  Receipt Date: 20181109
  Transmission Date: 20190205
  Serious: Yes (Death, Other)
  Sender: FDA-Public Use
  Company Number: NL-ACTELION-A-CH2018-180578

PATIENT
  Age: 58 Year
  Sex: Female

DRUGS (5)
  1. SILDENAFIL. [Concomitant]
     Active Substance: SILDENAFIL
  2. DOBUTAMINE [Concomitant]
     Active Substance: DOBUTAMINE\DOBUTAMINE HYDROCHLORIDE
  3. EPOPROSTENOL SODIUM. [Suspect]
     Active Substance: EPOPROSTENOL SODIUM
     Indication: PULMONARY HYPERTENSION
     Route: 042
  4. OXYGEN. [Concomitant]
     Active Substance: OXYGEN
  5. MILRINONE [Concomitant]
     Active Substance: MILRINONE

REACTIONS (5)
  - Respiratory failure [Unknown]
  - Therapy non-responder [Unknown]
  - Pulmonary tumour thrombotic microangiopathy [Fatal]
  - Hypotension [Unknown]
  - Condition aggravated [Unknown]
